FAERS Safety Report 15148337 (Version 4)
Quarter: 2018Q4

REPORT INFORMATION
  Report Type: Report from Study
  Country: US (occurrence: US)
  Receive Date: 20180716
  Receipt Date: 20181011
  Transmission Date: 20190204
  Serious: Yes (Other)
  Sender: FDA-Public Use
  Company Number: US-JNJFOC-20180627395

PATIENT
  Age: 52 Year
  Sex: Female

DRUGS (6)
  1. TREMFYA [Suspect]
     Active Substance: GUSELKUMAB
     Indication: PSORIASIS
     Route: 058
     Dates: start: 20180604, end: 20180604
  2. ALLEGRA [Concomitant]
     Active Substance: FEXOFENADINE HYDROCHLORIDE
     Indication: MULTIPLE ALLERGIES
  3. ALLEGRA [Concomitant]
     Active Substance: FEXOFENADINE HYDROCHLORIDE
     Indication: SEASONAL ALLERGY
  4. CURCUMIN [Concomitant]
     Active Substance: CURCUMIN
     Indication: PSORIASIS
     Dates: start: 20180503, end: 20180608
  5. VITAMIN D [Concomitant]
     Active Substance: CHOLECALCIFEROL
  6. VITAMIN C [Concomitant]
     Active Substance: ASCORBIC ACID
     Route: 065

REACTIONS (7)
  - Rash generalised [Recovered/Resolved]
  - Abnormal behaviour [Recovered/Resolved]
  - Urticaria [Recovered/Resolved]
  - Chest pain [Recovered/Resolved]
  - Pruritus [Recovering/Resolving]
  - Rash macular [Recovered/Resolved]
  - Hypersensitivity [Recovered/Resolved]

NARRATIVE: CASE EVENT DATE: 20180618
